FAERS Safety Report 22213046 (Version 1)
Quarter: 2023Q2

REPORT INFORMATION
  Report Type: Spontaneous
  Country: US (occurrence: US)
  Receive Date: 20230414
  Receipt Date: 20230414
  Transmission Date: 20230722
  Serious: No
  Sender: FDA-Public Use
  Company Number: US-ALLERGAN-2207798US

PATIENT
  Age: 23 Year
  Sex: Female

DRUGS (2)
  1. LILETTA [Suspect]
     Active Substance: LEVONORGESTREL
     Indication: Contraception
     Dosage: 52 MG, SINGLE
     Route: 015
     Dates: start: 20220302, end: 20220302
  2. LILETTA [Suspect]
     Active Substance: LEVONORGESTREL
     Indication: Menstruation irregular

REACTIONS (4)
  - Off label use [Unknown]
  - Hyperhidrosis [Unknown]
  - Anxiety [Unknown]
  - Procedural pain [Unknown]

NARRATIVE: CASE EVENT DATE: 20220302
